FAERS Safety Report 8519984-5 (Version None)
Quarter: 2012Q2

REPORT INFORMATION
  Report Type: 
  Country: None (occurrence: None)
  Receive Date: 20120406
  Receipt Date: 20100826
  Transmission Date: 20120825
  Serious: Yes (Hospitalization)
  Sender: FDA-Public Use
  Company Number: PHHY2010US56389

PATIENT
  Age: 54 Year
  Sex: Female

DRUGS (4)
  1. HYDREA [Suspect]
  2. AZITHROMYCIN [Suspect]
     Dosage: 250 MG
  3. ESTROGENS (NO INGREDIENTS/SUBSTANCES) [Concomitant]
  4. TASIGNA [Suspect]
     Indication: LEUKAEMIA
     Dosage: 150 MG, FOUR TIME A DAY

REACTIONS (2)
  - RASH [None]
  - COUGH [None]
